FAERS Safety Report 17493965 (Version 1)
Quarter: 2020Q1

REPORT INFORMATION
  Report Type: Spontaneous
  Country: US (occurrence: US)
  Receive Date: 20200304
  Receipt Date: 20200304
  Transmission Date: 20200409
  Serious: No
  Sender: FDA-Public Use
  Company Number: US-ELI_LILLY_AND_COMPANY-US202002013086

PATIENT
  Sex: Female

DRUGS (8)
  1. HUMULIN N [Suspect]
     Active Substance: INSULIN HUMAN
     Dosage: 8 U, EACH MORNING (INCREASE DOSE TO 2 UNITS EVERY THREE DAYS)
     Route: 065
     Dates: start: 201912
  2. HUMULIN N [Suspect]
     Active Substance: INSULIN HUMAN
     Indication: GESTATIONAL DIABETES
     Dosage: 10 U, EACH EVENING (INCREASE DOSE TO 2 UNITS EVERY THREE DAYS)
     Route: 065
     Dates: start: 201912
  3. HUMULIN N [Suspect]
     Active Substance: INSULIN HUMAN
     Dosage: 8 U, EACH MORNING (INCREASE DOSE TO 2 UNITS EVERY THREE DAYS)
     Route: 065
     Dates: start: 201912
  4. HUMULIN N [Suspect]
     Active Substance: INSULIN HUMAN
     Dosage: 18 U, EACH MORNING (INCREASE DOSE TO 2 UNITS EVERY THREE DAYS)
     Route: 065
  5. HUMULIN N [Suspect]
     Active Substance: INSULIN HUMAN
     Dosage: 24 U, EACH EVENING (INCREASE DOSE TO 2 UNITS EVERY THREE DAYS)
     Route: 065
  6. HUMULIN N [Suspect]
     Active Substance: INSULIN HUMAN
     Indication: GESTATIONAL DIABETES
     Dosage: 10 U, EACH EVENING (INCREASE DOSE TO 2 UNITS EVERY THREE DAYS)
     Route: 065
     Dates: start: 201912
  7. HUMULIN N [Suspect]
     Active Substance: INSULIN HUMAN
     Dosage: 24 U, EACH EVENING (INCREASE DOSE TO 2 UNITS EVERY THREE DAYS)
     Route: 065
  8. HUMULIN N [Suspect]
     Active Substance: INSULIN HUMAN
     Dosage: 18 U, EACH MORNING (INCREASE DOSE TO 2 UNITS EVERY THREE DAYS)
     Route: 065

REACTIONS (2)
  - Blood glucose increased [Unknown]
  - Maternal exposure during pregnancy [Unknown]
